FAERS Safety Report 8007270-1 (Version None)
Quarter: 2011Q4

REPORT INFORMATION
  Report Type: 
  Country: None (occurrence: None)
  Receive Date: 20111129
  Receipt Date: 20111118
  Transmission Date: 20120403
  Serious: Yes (Life-Threatening)
  Sender: FDA-Public Use
  Company Number: 2011030355

PATIENT
  Age: 61 Year
  Sex: Female

DRUGS (2)
  1. PRIVIGEN [Suspect]
     Indication: TRANSPLANT REJECTION
     Dosage: 3 G QD, 60 G QD
     Route: 042
     Dates: start: 20110712, end: 20110713
  2. PRIVIGEN [Suspect]
     Indication: TRANSPLANT REJECTION
     Dosage: 3 G QD, 60 G QD
     Route: 042
     Dates: start: 20110712, end: 20110712

REACTIONS (5)
  - CIRCULATORY COLLAPSE [None]
  - OFF LABEL USE [None]
  - INFUSION RELATED REACTION [None]
  - PYREXIA [None]
  - HYPOXIA [None]
